FAERS Safety Report 25874435 (Version 1)
Quarter: 2025Q4

REPORT INFORMATION
  Report Type: Spontaneous
  Country: US (occurrence: None)
  Receive Date: 20251002
  Receipt Date: 20251002
  Transmission Date: 20260118
  Serious: Yes (Other)
  Sender: FDA-CTU
  Company Number: None

PATIENT
  Age: 43 Year
  Sex: Female
  Weight: 78.75 kg

DRUGS (7)
  1. QELBREE [Suspect]
     Active Substance: VILOXAZINE HYDROCHLORIDE
     Indication: Attention deficit hyperactivity disorder
     Route: 048
     Dates: start: 20250917, end: 20250926
  2. MIRENA [Concomitant]
     Active Substance: LEVONORGESTREL
  3. WELLBUTRIN [Concomitant]
     Active Substance: BUPROPION HYDROCHLORIDE
  4. GABAPENTIN [Concomitant]
     Active Substance: GABAPENTIN
  5. ATIVAN [Concomitant]
     Active Substance: LORAZEPAM
  6. NAPROXEN [Concomitant]
     Active Substance: NAPROXEN
  7. TYLENOL [Concomitant]
     Active Substance: ACETAMINOPHEN

REACTIONS (12)
  - Nausea [None]
  - Vomiting [None]
  - Hypophagia [None]
  - Headache [None]
  - Migraine [None]
  - Blood pressure increased [None]
  - Hypersomnia [None]
  - Heart rate increased [None]
  - Intentional dose omission [None]
  - Dizziness [None]
  - Dizziness [None]
  - Drug ineffective [None]

NARRATIVE: CASE EVENT DATE: 20250927
